FAERS Safety Report 21072609 (Version 1)
Quarter: 2022Q3

REPORT INFORMATION
  Report Type: Spontaneous
  Country: JP (occurrence: JP)
  Receive Date: 20220712
  Receipt Date: 20220712
  Transmission Date: 20221027
  Serious: Yes (Hospitalization)
  Sender: FDA-Public Use
  Company Number: JP-BAUSCH-BL-2022-017105

PATIENT
  Age: 82 Year
  Sex: Female

DRUGS (10)
  1. HERBESSER [Suspect]
     Active Substance: DILTIAZEM HYDROCHLORIDE
     Indication: Hypertension
     Route: 048
  2. ETIZOLAM [Suspect]
     Active Substance: ETIZOLAM
     Indication: Phobia
     Route: 048
  3. ETIZOLAM [Suspect]
     Active Substance: ETIZOLAM
     Indication: Insomnia
     Route: 048
  4. ETIZOLAM [Suspect]
     Active Substance: ETIZOLAM
     Route: 048
  5. DIETARY SUPPLEMENT\PROBIOTICS [Concomitant]
     Active Substance: DIETARY SUPPLEMENT\PROBIOTICS
     Indication: Product used for unknown indication
  6. TEPRENONE [Concomitant]
     Active Substance: TEPRENONE
     Indication: Product used for unknown indication
  7. CANDESARTAN CILEXETIL [Concomitant]
     Active Substance: CANDESARTAN CILEXETIL
     Indication: Product used for unknown indication
  8. LANSOPRAZOLE [Concomitant]
     Active Substance: LANSOPRAZOLE
     Indication: Product used for unknown indication
  9. VONOPRAZAN FUMARATE [Concomitant]
     Active Substance: VONOPRAZAN FUMARATE
     Indication: Product used for unknown indication
  10. PRAVASTATIN SODIUM [Concomitant]
     Active Substance: PRAVASTATIN SODIUM
     Indication: Product used for unknown indication

REACTIONS (18)
  - Lung neoplasm malignant [Unknown]
  - Dependence [Unknown]
  - Dysphagia [Unknown]
  - Dry skin [Unknown]
  - Abdominal discomfort [Unknown]
  - Mouth swelling [Unknown]
  - Stomatitis [Unknown]
  - Nasal mucosal disorder [Unknown]
  - Cheilitis [Unknown]
  - Eyelid irritation [Unknown]
  - Blood cholesterol increased [Unknown]
  - Skin exfoliation [Unknown]
  - Bone disorder [Unknown]
  - Erythema [Unknown]
  - Pharyngeal paraesthesia [Unknown]
  - Dysgeusia [Unknown]
  - Dizziness [Unknown]
  - Nausea [Unknown]
